FAERS Safety Report 25772939 (Version 3)
Quarter: 2025Q4

REPORT INFORMATION
  Report Type: Spontaneous
  Country: HN (occurrence: HN)
  Receive Date: 20250908
  Receipt Date: 20251015
  Transmission Date: 20260118
  Serious: No
  Sender: PFIZER
  Company Number: HN-PFIZER INC-PV202500106148

PATIENT
  Age: 13 Year
  Sex: Female

DRUGS (1)
  1. GENOTROPIN [Suspect]
     Active Substance: SOMATROPIN
     Dosage: 0.5 MG, 1X/DAY

REACTIONS (2)
  - Device information output issue [Unknown]
  - Device leakage [Unknown]
